FAERS Safety Report 4811829-X (Version None)
Quarter: 2005Q4

REPORT INFORMATION
  Report Type: 
  Country: None (occurrence: None)
  Receive Date: 20051027
  Receipt Date: 20051027
  Transmission Date: 20060501
  Serious: Yes (Hospitalization)
  Sender: FDA-Public Use
  Company Number: None

PATIENT
  Age: 46 Year
  Sex: Male
  Weight: 69.8539 kg

DRUGS (1)
  1. HCTZ 12.5MG/LISINOPRIL 12.5MG/10MG [Suspect]
     Indication: HYPERTENSION
     Dosage: 12.5MG/10MG QD PO
     Route: 048
     Dates: start: 20050728, end: 20050811

REACTIONS (1)
  - ANGIONEUROTIC OEDEMA [None]
